FAERS Safety Report 4280560-4 (Version None)
Quarter: 2004Q1

REPORT INFORMATION
  Report Type: 
  Country: None (occurrence: None)
  Receive Date: 20040127
  Receipt Date: 20030116
  Transmission Date: 20041129
  Serious: Yes (Hospitalization, Other)
  Sender: FDA-Public Use
  Company Number: 2004001236

PATIENT
  Age: 80 Year
  Sex: Female

DRUGS (3)
  1. NEURONTIN [Suspect]
     Indication: SCIATICA
     Dosage: 1200 MG (TID), ORAL
     Route: 048
     Dates: start: 20011201, end: 20020227
  2. DIHYDROERGOTOXINE (DIHYDROERGOTOXINE) [Suspect]
     Indication: ILL-DEFINED DISORDER
     Dosage: ORAL
     Route: 048
     Dates: end: 20020227
  3. ALENDRONATE SODIUM [Suspect]
     Indication: ILL-DEFINED DISORDER
     Dosage: ORAL
     Route: 048
     Dates: end: 20020227

REACTIONS (9)
  - ASTHENIA [None]
  - CARDIOMEGALY [None]
  - CHLAMYDIAL INFECTION [None]
  - COMPUTERISED TOMOGRAM ABNORMAL [None]
  - DYSPNOEA EXERTIONAL [None]
  - HEADACHE [None]
  - INTERSTITIAL LUNG DISEASE [None]
  - PULMONARY EMBOLISM [None]
  - PULMONARY FIBROSIS [None]
